FAERS Safety Report 6912643-1 (Version None)
Quarter: 2010Q3

REPORT INFORMATION
  Report Type: 
  Country: None (occurrence: None)
  Receive Date: 20100806
  Receipt Date: 20081009
  Transmission Date: 20110219
  Serious: No
  Sender: FDA-Public Use
  Company Number: US-PFIZER INC-2008065300

PATIENT
  Sex: Female

DRUGS (11)
  1. DETROL LA [Suspect]
     Indication: BLADDER IRRITATION
     Route: 048
     Dates: start: 20080701
  2. DETROL LA [Suspect]
     Indication: CYSTITIS INTERSTITIAL
  3. DETROL LA [Suspect]
     Indication: BLADDER DISORDER
  4. ALL OTHER THERAPEUTIC PRODUCTS [Suspect]
  5. ELMIRON [Concomitant]
  6. ATENOLOL [Concomitant]
  7. ALL OTHER THERAPEUTIC PRODUCTS [Concomitant]
  8. CRANBERRY [Concomitant]
  9. VITAMIN B COMPLEX CAP [Concomitant]
  10. VITAMIN E [Concomitant]
  11. ACETYLSALICYLIC ACID SRT [Concomitant]

REACTIONS (8)
  - DRY MOUTH [None]
  - DRY THROAT [None]
  - DYSPHAGIA [None]
  - HYPOAESTHESIA [None]
  - MUSCULOSKELETAL STIFFNESS [None]
  - PAIN IN EXTREMITY [None]
  - POLLAKIURIA [None]
  - WEIGHT DECREASED [None]
